FAERS Safety Report 19090305 (Version 1)
Quarter: 2021Q2

REPORT INFORMATION
  Report Type: Spontaneous
  Country: US (occurrence: US)
  Receive Date: 20210405
  Receipt Date: 20210405
  Transmission Date: 20210717
  Serious: No
  Sender: FDA-Public Use
  Company Number: US-JNJFOC-20210335595

PATIENT
  Age: 51 Year
  Sex: Female

DRUGS (2)
  1. SPRAVATO [Suspect]
     Active Substance: ESKETAMINE
  2. SPRAVATO [Suspect]
     Active Substance: ESKETAMINE
     Indication: DEPRESSION

REACTIONS (6)
  - Paranoia [Unknown]
  - Adverse event [Unknown]
  - Dizziness [Unknown]
  - Tinnitus [Unknown]
  - Panic attack [Unknown]
  - Headache [Unknown]

NARRATIVE: CASE EVENT DATE: 202010
